FAERS Safety Report 7741713-3 (Version None)
Quarter: 2011Q3

REPORT INFORMATION
  Report Type: 
  Country: None (occurrence: None)
  Receive Date: 20110912
  Receipt Date: 20110830
  Transmission Date: 20111222
  Serious: Yes (Hospitalization)
  Sender: FDA-Public Use
  Company Number: US-BIOGENIDEC-2011BI033374

PATIENT
  Age: 48 Year
  Sex: Female
  Weight: 55 kg

DRUGS (7)
  1. DETROL LA [Concomitant]
     Indication: NEUROGENIC BLADDER
     Route: 048
     Dates: start: 20110816
  2. TYSABRI [Suspect]
     Indication: MULTIPLE SCLEROSIS
     Route: 042
     Dates: start: 20080414
  3. SEROQUEL [Concomitant]
     Route: 048
  4. BACLOFEN [Concomitant]
     Indication: MUSCLE SPASTICITY
     Route: 048
     Dates: start: 20101210
  5. SEROQUEL [Concomitant]
     Indication: AFFECTIVE DISORDER
     Route: 048
  6. LORTAB [Concomitant]
     Indication: BONE PAIN
     Route: 048
  7. PROZAC [Concomitant]
     Indication: AFFECTIVE DISORDER
     Route: 048

REACTIONS (8)
  - CARBON DIOXIDE DECREASED [None]
  - WHITE BLOOD CELL COUNT INCREASED [None]
  - BLOOD ALKALINE PHOSPHATASE INCREASED [None]
  - OVERDOSE [None]
  - DYSPNOEA [None]
  - NITRITE URINE PRESENT [None]
  - ANXIETY [None]
  - BLOOD PRESSURE INCREASED [None]
